FAERS Safety Report 12241352 (Version 1)
Quarter: 2016Q2

REPORT INFORMATION
  Report Type: Spontaneous
  Country: US (occurrence: None)
  Receive Date: 20160405
  Receipt Date: 20160405
  Transmission Date: 20160815
  Serious: Yes (Disabling, Other)
  Sender: FDA-Public Use
  Company Number: None

PATIENT
  Age: 46 Year
  Sex: Female
  Weight: 58.97 kg

DRUGS (1)
  1. KYBELLA [Suspect]
     Active Substance: DEOXYCHOLIC ACID
     Indication: SKIN DISORDER
     Dosage: GIVEN INTO/UNDER THE SKIN
     Dates: start: 20160316, end: 20160316

REACTIONS (1)
  - Cranial nerve injury [None]

NARRATIVE: CASE EVENT DATE: 20160316
